FAERS Safety Report 7727728-X (Version None)
Quarter: 2011Q3

REPORT INFORMATION
  Report Type: 
  Country: None (occurrence: None)
  Receive Date: 20110902
  Receipt Date: 20110830
  Transmission Date: 20111222
  Serious: Yes (Life-Threatening, Hospitalization)
  Sender: FDA-Public Use
  Company Number: FR-B.I. PHARMACEUTICALS,INC./RIDGEFIELD-2011-FF-00673FF

PATIENT
  Sex: Male
  Weight: 80 kg

DRUGS (4)
  1. TAMSULOSIN HCL [Suspect]
     Indication: BENIGN PROSTATIC HYPERPLASIA
     Dosage: 0.4 MG
     Route: 048
  2. PREVISCAN [Suspect]
     Indication: THROMBOSIS PROPHYLAXIS
     Dosage: 20 MG
     Route: 048
     Dates: start: 20050101, end: 20110614
  3. OFLOXACIN [Suspect]
     Indication: PYREXIA
     Dosage: 400 MG
     Route: 048
     Dates: start: 20110606, end: 20110610
  4. ATORVASTATIN CALCIUM [Suspect]
     Indication: HYPERCHOLESTEROLAEMIA
     Dosage: 10 MG
     Route: 048

REACTIONS (8)
  - PYREXIA [None]
  - HEPATOCELLULAR INJURY [None]
  - EPISTAXIS [None]
  - MUSCLE HAEMORRHAGE [None]
  - CONFUSIONAL STATE [None]
  - CELL DEATH [None]
  - INTERNATIONAL NORMALISED RATIO INCREASED [None]
  - DRUG INTERACTION [None]
